FAERS Safety Report 5055693-5 (Version None)
Quarter: 2006Q3

REPORT INFORMATION
  Report Type: 
  Country: None (occurrence: None)
  Receive Date: 20060714
  Receipt Date: 20060626
  Transmission Date: 20061208
  Serious: Yes (Other)
  Sender: FDA-Public Use
  Company Number: US200606005579

PATIENT
  Age: 84 Year
  Sex: Female

DRUGS (1)
  1. EVISTA [Suspect]
     Indication: OSTEOPOROSIS
     Dosage: ORAL
     Route: 048
     Dates: start: 20060525, end: 20060616

REACTIONS (3)
  - LIP ULCERATION [None]
  - MOUTH ULCERATION [None]
  - STOMATITIS [None]
